FAERS Safety Report 5357108-6 (Version None)
Quarter: 2007Q2

REPORT INFORMATION
  Report Type: 
  Country: None (occurrence: None)
  Receive Date: 20070612
  Receipt Date: 20070529
  Transmission Date: 20071010
  Serious: Yes (Life-Threatening)
  Sender: FDA-Public Use
  Company Number: 6034019

PATIENT
  Age: 70 Year
  Sex: Female

DRUGS (2)
  1. BISOPROLOL FUMARATE AND HYDROCHLOROTHIAZIDE [Suspect]
     Indication: HYPERTENSION
  2. ASPIRIN [Concomitant]

REACTIONS (16)
  - AGITATION [None]
  - BACK PAIN [None]
  - BLOOD PRESSURE DIASTOLIC INCREASED [None]
  - CONFUSIONAL STATE [None]
  - CYANOSIS [None]
  - DIZZINESS [None]
  - FAECAL INCONTINENCE [None]
  - FEELING COLD [None]
  - HYPERHIDROSIS [None]
  - HYPERVENTILATION [None]
  - NON-CARDIOGENIC PULMONARY OEDEMA [None]
  - PULMONARY OEDEMA [None]
  - SHOCK [None]
  - TACHYPNOEA [None]
  - URINARY INCONTINENCE [None]
  - VOMITING [None]
